FAERS Safety Report 17865494 (Version 1)
Quarter: 2020Q2

REPORT INFORMATION
  Report Type: Spontaneous
  Country: US (occurrence: US)
  Receive Date: 20200605
  Receipt Date: 20200605
  Transmission Date: 20200714
  Serious: Yes (Death, Life-Threatening)
  Sender: FDA-Public Use
  Company Number: None

PATIENT
  Age: 58 Year
  Sex: Male
  Weight: 107 kg

DRUGS (11)
  1. ASPIRIN. [Concomitant]
     Active Substance: ASPIRIN
     Dates: start: 20200525, end: 20200604
  2. REMDESIVIR. [Suspect]
     Active Substance: REMDESIVIR
     Indication: COVID-19
     Route: 042
     Dates: start: 20200527, end: 20200602
  3. NOREPINEPHRINE. [Concomitant]
     Active Substance: NOREPINEPHRINE
     Dates: start: 20200529, end: 20200601
  4. MIDAZOLAM. [Concomitant]
     Active Substance: MIDAZOLAM
  5. PROPOFOL. [Concomitant]
     Active Substance: PROPOFOL
  6. FENTANYL. [Concomitant]
     Active Substance: FENTANYL
     Dates: start: 20200528, end: 20200605
  7. ARGATROBAN. [Concomitant]
     Active Substance: ARGATROBAN
     Dates: start: 20200529, end: 20200601
  8. SUCCINYLCHOLINE [Concomitant]
     Active Substance: SUCCINYLCHOLINE
  9. ACETAMINOPHEN. [Concomitant]
     Active Substance: ACETAMINOPHEN
     Dates: start: 20200525, end: 20200603
  10. DEXMEDETOMIDINE. [Concomitant]
     Active Substance: DEXMEDETOMIDINE
     Dates: end: 20200602
  11. ROCURONIUM [Concomitant]
     Active Substance: ROCURONIUM BROMIDE

REACTIONS (8)
  - Unresponsive to stimuli [None]
  - Infarction [None]
  - Respiratory failure [None]
  - Troponin increased [None]
  - Thrombocytopenia [None]
  - Brain death [None]
  - International normalised ratio increased [None]
  - Miosis [None]

NARRATIVE: CASE EVENT DATE: 20200601
